FAERS Safety Report 4579451-0 (Version None)
Quarter: 2005Q1

REPORT INFORMATION
  Report Type: 
  Country: None (occurrence: None)
  Receive Date: 20050209
  Receipt Date: 20050125
  Transmission Date: 20050727
  Serious: Yes (Hospitalization)
  Sender: FDA-Public Use
  Company Number: USA050188016

PATIENT
  Age: 71 Year
  Sex: Female

DRUGS (1)
  1. HUMULIN N [Suspect]

REACTIONS (5)
  - BLOOD GLUCOSE DECREASED [None]
  - HIP ARTHROPLASTY [None]
  - PHARYNGOLARYNGEAL PAIN [None]
  - VACCINATION COMPLICATION [None]
  - WALKING AID USER [None]
